FAERS Safety Report 16974911 (Version 5)
Quarter: 2020Q1

REPORT INFORMATION
  Report Type: Spontaneous
  Country: US (occurrence: US)
  Receive Date: 20191030
  Receipt Date: 20200106
  Transmission Date: 20200409
  Serious: Yes (Hospitalization)
  Sender: FDA-Public Use
  Company Number: US-ACTELION-A-NJ2019-197505

PATIENT
  Age: 1 Year
  Sex: Male

DRUGS (12)
  1. RANITIDINE. [Concomitant]
     Active Substance: RANITIDINE
  2. TRACLEER [Suspect]
     Active Substance: BOSENTAN
     Indication: PULMONARY ARTERIAL HYPERTENSION
     Dosage: 16 MG, BID
     Route: 048
  3. ALBUTEROL. [Concomitant]
     Active Substance: ALBUTEROL
  4. POLYETHYLENE GLYCOL [Concomitant]
     Active Substance: POLYETHYLENE GLYCOLS
  5. PREDNISONE. [Concomitant]
     Active Substance: PREDNISONE
  6. TRACLEER [Suspect]
     Active Substance: BOSENTAN
     Dosage: 32 MG, QD
     Route: 048
     Dates: start: 20190705
  7. AMOXICILLIN. [Concomitant]
     Active Substance: AMOXICILLIN
  8. BUDESONIDE. [Concomitant]
     Active Substance: BUDESONIDE
  9. A-HYDROCORT [Concomitant]
     Active Substance: HYDROCORTISONE SODIUM SUCCINATE
  10. DIURIL [Concomitant]
     Active Substance: CHLOROTHIAZIDE
  11. LACTOSE [Concomitant]
     Active Substance: LACTOSE
  12. PEDIA LAX [Concomitant]
     Dosage: 1 G

REACTIONS (4)
  - Vomiting [Not Recovered/Not Resolved]
  - Hypertension [Not Recovered/Not Resolved]
  - Pneumonia [Unknown]
  - Dyspnoea [Not Recovered/Not Resolved]

NARRATIVE: CASE EVENT DATE: 201910
